FAERS Safety Report 7705802-1 (Version None)
Quarter: 2011Q3

REPORT INFORMATION
  Report Type: 
  Country: None (occurrence: None)
  Receive Date: 20110824
  Receipt Date: 20110824
  Transmission Date: 20111222
  Serious: Yes (Hospitalization)
  Sender: FDA-Public Use
  Company Number: None

PATIENT
  Age: 63 Year
  Sex: Female

DRUGS (2)
  1. COLCHICINE [Concomitant]
     Route: 048
  2. ALLOPURINOL [Suspect]
     Indication: GOUT
     Dosage: 1 TAB
     Route: 048

REACTIONS (7)
  - DRUG RASH WITH EOSINOPHILIA AND SYSTEMIC SYMPTOMS [None]
  - ALANINE AMINOTRANSFERASE INCREASED [None]
  - ASPARTATE AMINOTRANSFERASE INCREASED [None]
  - PYREXIA [None]
  - PAIN [None]
  - BLOOD CREATININE INCREASED [None]
  - EOSINOPHILIA [None]
